FAERS Safety Report 19767450 (Version 1)
Quarter: 2021Q3

REPORT INFORMATION
  Report Type: Report from Study
  Country: US (occurrence: US)
  Receive Date: 20210830
  Receipt Date: 20210830
  Transmission Date: 20211014
  Serious: Yes (Death, Other)
  Sender: FDA-Public Use
  Company Number: US-TAKEDA-2021TUS052214

PATIENT
  Sex: Male

DRUGS (4)
  1. TEDUGLUTIDE [Suspect]
     Active Substance: TEDUGLUTIDE
     Indication: SHORT-BOWEL SYNDROME
     Dosage: 5 MILLIGRAM
     Route: 058
     Dates: start: 20210729
  2. TEDUGLUTIDE [Suspect]
     Active Substance: TEDUGLUTIDE
     Indication: SHORT-BOWEL SYNDROME
     Dosage: 5 MILLIGRAM
     Route: 058
     Dates: start: 20210729
  3. TEDUGLUTIDE [Suspect]
     Active Substance: TEDUGLUTIDE
     Indication: SHORT-BOWEL SYNDROME
     Dosage: 5 MILLIGRAM
     Route: 058
     Dates: start: 20210729
  4. TEDUGLUTIDE [Suspect]
     Active Substance: TEDUGLUTIDE
     Indication: SHORT-BOWEL SYNDROME
     Dosage: 5 MILLIGRAM
     Route: 058
     Dates: start: 20210729

REACTIONS (2)
  - Myocardial infarction [Fatal]
  - Thrombosis [Fatal]
